FAERS Safety Report 13777022 (Version 1)
Quarter: 2017Q3

REPORT INFORMATION
  Report Type: Spontaneous
  Country: FR (occurrence: FR)
  Receive Date: 20170721
  Receipt Date: 20170721
  Transmission Date: 20171127
  Serious: Yes (Other)
  Sender: FDA-Public Use
  Company Number: FR-BAYER-2017-135126

PATIENT
  Age: 32 Year
  Sex: Female

DRUGS (1)
  1. MIRENA [Suspect]
     Active Substance: LEVONORGESTREL
     Indication: CONTRACEPTION
     Dosage: 20 MCG/24HR, CONT
     Route: 015
     Dates: start: 20140318

REACTIONS (11)
  - Acne [Unknown]
  - Vertigo [Unknown]
  - Depression [Unknown]
  - Musculoskeletal disorder [Unknown]
  - Libido decreased [Unknown]
  - Anxiety [Unknown]
  - Asthenia [Unknown]
  - Amnesia [Unknown]
  - Extrasystoles [Unknown]
  - Alopecia [Unknown]
  - Abdominal pain [Unknown]

NARRATIVE: CASE EVENT DATE: 2015
